FAERS Safety Report 25408289 (Version 1)
Quarter: 2025Q2

REPORT INFORMATION
  Report Type: Spontaneous
  Country: US (occurrence: US)
  Receive Date: 20250606
  Receipt Date: 20250606
  Transmission Date: 20250717
  Serious: No
  Sender: SANOFI AVENTIS
  Company Number: US-SA-2025SA161013

PATIENT
  Sex: Female

DRUGS (2)
  1. KEVZARA [Suspect]
     Active Substance: SARILUMAB
     Indication: Rheumatoid arthritis
     Route: 058
  2. RINVOQ [Concomitant]
     Active Substance: UPADACITINIB
     Dosage: 16 MG, QD
     Dates: start: 202412

REACTIONS (1)
  - Granuloma annulare [Unknown]
